FAERS Safety Report 7678799-0 (Version None)
Quarter: 2011Q3

REPORT INFORMATION
  Report Type: 
  Country: None (occurrence: None)
  Receive Date: 20110811
  Receipt Date: 20110802
  Transmission Date: 20111222
  Serious: Yes (Hospitalization, Other)
  Sender: FDA-Public Use
  Company Number: US-ASTRAZENECA-2010SE42011

PATIENT
  Age: 64 Year
  Sex: Female
  Weight: 102.5 kg

DRUGS (4)
  1. PRILOSEC [Suspect]
     Route: 048
  2. NEXIUM [Suspect]
     Route: 048
  3. BENICAR [Concomitant]
  4. SPIRIVA [Concomitant]

REACTIONS (8)
  - FEELING ABNORMAL [None]
  - INTESTINAL OBSTRUCTION [None]
  - VOMITING [None]
  - GASTROOESOPHAGEAL REFLUX DISEASE [None]
  - DRUG DOSE OMISSION [None]
  - DRUG INEFFECTIVE [None]
  - COLON CANCER [None]
  - VOMITING PROJECTILE [None]
